FAERS Safety Report 9680058 (Version 2)
Quarter: 2013Q4

REPORT INFORMATION
  Report Type: Spontaneous
  Country: US (occurrence: US)
  Receive Date: 20131110
  Receipt Date: 20131226
  Transmission Date: 20140711
  Serious: No
  Sender: FDA-Public Use
  Company Number: US-SA-MIPO-1000454

PATIENT
  Age: 74 Year
  Sex: Female

DRUGS (1)
  1. KYNAMRO [Suspect]
     Indication: TYPE IIA HYPERLIPIDAEMIA
     Dosage: 200 MG, QW
     Route: 059
     Dates: start: 20130705, end: 201312

REACTIONS (5)
  - Hepatic enzyme increased [Unknown]
  - Injection site reaction [Recovered/Resolved]
  - Injection site bruising [Recovered/Resolved]
  - Abdominal pain upper [Unknown]
  - Depressed mood [Unknown]
